FAERS Safety Report 10528139 (Version 2)
Quarter: 2014Q4

REPORT INFORMATION
  Report Type: Spontaneous
  Country: US (occurrence: US)
  Receive Date: 20141020
  Receipt Date: 20141106
  Transmission Date: 20150528
  Serious: Yes (Other)
  Sender: FDA-Public Use
  Company Number: US-SA-2014SA140587

PATIENT
  Age: 70 Year
  Sex: Female
  Weight: 72.27 kg

DRUGS (9)
  1. LANTUS [Suspect]
     Active Substance: INSULIN GLARGINE
     Indication: TYPE 2 DIABETES MELLITUS
     Dosage: DOSE: SLIDING SCALE, 50 UNITS IN MORNING AND UPTO 20 UNITS IN EVENING
     Route: 065
     Dates: start: 2012
  2. HYZAAR [Concomitant]
     Active Substance: HYDROCHLOROTHIAZIDE\LOSARTAN POTASSIUM
  3. DILTIAZEM HYDROCHLORIDE. [Concomitant]
     Active Substance: DILTIAZEM HYDROCHLORIDE
  4. VYTORIN [Concomitant]
     Active Substance: EZETIMIBE\SIMVASTATIN
  5. GLYBURIDE W/METFORMIN [Concomitant]
  6. CHLORTHALIDONE. [Concomitant]
     Active Substance: CHLORTHALIDONE
  7. JANUVIA [Concomitant]
     Active Substance: SITAGLIPTIN PHOSPHATE
  8. LEVEMIR [Concomitant]
     Active Substance: INSULIN DETEMIR
     Dosage: SOLUTION, DOSE; 40U IN THE AM AND 30 U IN THE PM
  9. LANTUS [Suspect]
     Active Substance: INSULIN GLARGINE
     Indication: TYPE 2 DIABETES MELLITUS
     Dosage: DOSE: SLIDING SCALE, 50 UNITS IN MORNING AND UPTO 20 UNITS IN EVENING DOSE:50 UNIT(S)
     Route: 065
     Dates: start: 20131004, end: 20140616

REACTIONS (2)
  - Drug administration error [Unknown]
  - Eye laser surgery [Unknown]

NARRATIVE: CASE EVENT DATE: 20140805
